FAERS Safety Report 13171926 (Version 1)
Quarter: 2017Q1

REPORT INFORMATION
  Report Type: Spontaneous
  Country: US (occurrence: US)
  Receive Date: 20170131
  Receipt Date: 20170131
  Transmission Date: 20170428
  Serious: No
  Sender: FDA-Public Use
  Company Number: US-ABBVIE-16K-163-1786056-00

PATIENT
  Sex: Female

DRUGS (1)
  1. HUMIRA [Suspect]
     Active Substance: ADALIMUMAB
     Indication: PSORIASIS
     Route: 050
     Dates: start: 20160101

REACTIONS (6)
  - Furuncle [Unknown]
  - Pruritus [Unknown]
  - Skin irritation [Unknown]
  - Deformity [Unknown]
  - Emotional disorder [Unknown]
  - Psoriasis [Unknown]
